FAERS Safety Report 6067831-6 (Version None)
Quarter: 2009Q1

REPORT INFORMATION
  Report Type: 
  Country: None (occurrence: None)
  Receive Date: 20090205
  Receipt Date: 20090121
  Transmission Date: 20090719
  Serious: Yes (Other)
  Sender: FDA-Public Use
  Company Number: PHHY2009DE04007

PATIENT
  Age: 56 Year
  Sex: Female

DRUGS (4)
  1. MYFORTIC [Suspect]
     Indication: CROHN'S DISEASE
     Dosage: 360 MG, BID
     Dates: start: 20060902
  2. MYFORTIC [Suspect]
     Indication: NECROTISING SCLERITIS
     Dosage: 720 MG, BID
     Dates: start: 20070101
  3. DECORTIN [Concomitant]
     Indication: CROHN'S DISEASE
     Dosage: 25 MG/D
     Route: 048
  4. DECORTIN [Concomitant]
     Indication: NECROTISING SCLERITIS

REACTIONS (12)
  - ABDOMINAL DISCOMFORT [None]
  - ANOPLASTY [None]
  - CROHN'S DISEASE [None]
  - DIARRHOEA [None]
  - DYSPNOEA [None]
  - HEART RATE INCREASED [None]
  - HOT FLUSH [None]
  - RESTLESSNESS [None]
  - SCLERITIS [None]
  - SLEEP DISORDER [None]
  - TREMOR [None]
  - WHITE BLOOD CELL COUNT INCREASED [None]
